FAERS Safety Report 6609291-X (Version None)
Quarter: 2010Q1

REPORT INFORMATION
  Report Type: 
  Country: None (occurrence: None)
  Receive Date: 20100224
  Receipt Date: 20100211
  Transmission Date: 20100710
  Serious: Yes (Hospitalization, Other)
  Sender: FDA-Public Use
  Company Number: RENA-1000605

PATIENT
  Age: 84 Year
  Sex: Male

DRUGS (2)
  1. RENVELA [Suspect]
     Indication: HYPERPHOSPHATAEMIA
     Dosage: 0.8G, TID, ORAL
     Route: 048
     Dates: start: 20090701
  2. RENAGEL [Suspect]
     Indication: HYPERPHOSPHATAEMIA
     Dosage: ORAL
     Route: 048
     Dates: end: 20090701

REACTIONS (3)
  - CEREBROVASCULAR ACCIDENT [None]
  - DYSPHAGIA [None]
  - HYPERPHOSPHATAEMIA [None]
